FAERS Safety Report 8152864-6 (Version None)
Quarter: 2012Q1

REPORT INFORMATION
  Report Type: 
  Country: None (occurrence: None)
  Receive Date: 20120221
  Receipt Date: 20120208
  Transmission Date: 20120608
  Serious: Yes (Life-Threatening)
  Sender: FDA-Public Use
  Company Number: JP-SANOFI-AVENTIS-2011SA076801

PATIENT
  Age: 59 Year
  Sex: Male
  Weight: 78 kg

DRUGS (14)
  1. OLMESARTAN MEDOXOMIL [Concomitant]
     Route: 048
     Dates: start: 20090128
  2. HEPARIN [Concomitant]
     Dosage: DOSE:800 UNIT(S)
     Route: 042
     Dates: start: 20090117, end: 20090117
  3. CLOPIDOGREL BISULFATE [Suspect]
     Route: 065
     Dates: start: 20090116, end: 20090116
  4. CALBLOCK [Concomitant]
     Route: 048
     Dates: start: 20090122, end: 20090224
  5. AMLODIPINE BESYLATE [Concomitant]
     Route: 048
     Dates: start: 20090203
  6. ASPIRIN [Concomitant]
     Route: 048
     Dates: start: 20090116
  7. CARVEDILOL [Concomitant]
     Route: 048
     Dates: start: 20090116
  8. RABEPRAZOLE SODIUM [Concomitant]
     Indication: PROPHYLAXIS
     Route: 048
     Dates: start: 20090116
  9. ALL OTHER THERAPEUTIC PRODUCTS [Concomitant]
     Route: 048
     Dates: start: 20090116
  10. LIDOCAINE [Concomitant]
     Dates: start: 20090117, end: 20090117
  11. SLOW-K [Concomitant]
     Route: 048
     Dates: start: 20090130, end: 20090209
  12. CLOPIDOGREL BISULFATE [Suspect]
     Route: 065
     Dates: start: 20110117
  13. ATORVASTATIN [Concomitant]
     Route: 048
     Dates: start: 20090116
  14. SIGMART [Concomitant]
     Route: 042
     Dates: start: 20090117, end: 20090121

REACTIONS (1)
  - CARDIAC FAILURE ACUTE [None]
